FAERS Safety Report 4350244-2 (Version None)
Quarter: 2004Q2

REPORT INFORMATION
  Report Type: 
  Country: None (occurrence: None)
  Receive Date: 20040426
  Receipt Date: 20040414
  Transmission Date: 20050107
  Serious: Yes (Other)
  Sender: FDA-Public Use
  Company Number: JP-SHR-04-023914

PATIENT
  Age: 64 Year
  Sex: Male

DRUGS (2)
  1. PROSCOPE 370 (IOPROMIDE) [Suspect]
     Indication: ARTERIOGRAM CORONARY
     Dosage: INTRAVENOUS
     Route: 042
     Dates: start: 20040319, end: 20040319
  2. ASPIRIN [Suspect]
     Dosage: ORAL
     Route: 048
     Dates: start: 20040319, end: 20040319

REACTIONS (3)
  - ACUTE MYOCARDIAL INFARCTION [None]
  - EXANTHEM [None]
  - HYPOTENSION [None]
